FAERS Safety Report 11128453 (Version 2)
Quarter: 2015Q2

REPORT INFORMATION
  Report Type: Spontaneous
  Country: US (occurrence: US)
  Receive Date: 20150521
  Receipt Date: 20150626
  Transmission Date: 20150821
  Serious: Yes (Hospitalization, Disabling, Other)
  Sender: FDA-Public Use
  Company Number: US-UCBSA-2015015801

PATIENT
  Age: 77 Year
  Sex: Male

DRUGS (1)
  1. CIMZIA [Suspect]
     Active Substance: CERTOLIZUMAB PEGOL
     Indication: RHEUMATOID ARTHRITIS
     Dosage: UNK
     Route: 058
     Dates: end: 20150129

REACTIONS (12)
  - Spinal column injury [Recovered/Resolved]
  - Spinal fracture [Recovered/Resolved]
  - Face injury [Recovering/Resolving]
  - Musculoskeletal stiffness [Not Recovered/Not Resolved]
  - Rib fracture [Recovered/Resolved]
  - Coma [Recovered/Resolved]
  - Facial bones fracture [Recovering/Resolving]
  - Haemorrhage [Recovered/Resolved]
  - Feeling abnormal [Not Recovered/Not Resolved]
  - Accident [Recovered/Resolved]
  - Cervical vertebral fracture [Recovered/Resolved]
  - Concussion [Recovered/Resolved]

NARRATIVE: CASE EVENT DATE: 20150129
